FAERS Safety Report 10067330 (Version 2)
Quarter: 2014Q2

REPORT INFORMATION
  Report Type: Spontaneous
  Country: US (occurrence: US)
  Receive Date: 20140409
  Receipt Date: 20140409
  Transmission Date: 20141212
  Serious: No
  Sender: FDA-Public Use
  Company Number: US-DRREDDYS-USA/USA/13/0036119

PATIENT
  Age: 62 Year
  Sex: Female

DRUGS (5)
  1. AUGMENTIN 875 MG TABLETS [Suspect]
     Indication: UPPER RESPIRATORY TRACT INFECTION
     Route: 048
     Dates: start: 20131204
  2. EPI-PEN [Concomitant]
     Indication: HYPERSENSITIVITY
     Route: 065
  3. MOTRIN [Concomitant]
     Indication: PAIN
     Route: 065
  4. MOTRIN [Concomitant]
     Indication: FIBROMYALGIA
  5. XOPENEX HFA [Concomitant]
     Indication: ASTHMA
     Route: 065

REACTIONS (6)
  - Dyspnoea [Recovered/Resolved]
  - Oropharyngeal pain [Recovered/Resolved]
  - Feeling hot [Recovered/Resolved]
  - Hyperhidrosis [Recovered/Resolved]
  - Pruritus [Recovered/Resolved]
  - Cough [Recovered/Resolved]
